FAERS Safety Report 5224938-0 (Version None)
Quarter: 2007Q1

REPORT INFORMATION
  Report Type: 
  Country: None (occurrence: None)
  Receive Date: 20070131
  Receipt Date: 20070110
  Transmission Date: 20070707
  Serious: Yes (Other)
  Sender: FDA-Public Use
  Company Number: PHHO2006AU20526

PATIENT
  Age: 64 Year
  Sex: Male
  Weight: 83 kg

DRUGS (3)
  1. CERTICAN [Suspect]
     Indication: RENAL TRANSPLANT
     Route: 048
     Dates: start: 20061030
  2. PREDNISONE [Concomitant]
     Indication: RENAL TRANSPLANT
     Route: 048
  3. NEORAL [Suspect]
     Indication: RENAL TRANSPLANT
     Route: 048

REACTIONS (2)
  - BLOOD POTASSIUM INCREASED [None]
  - ELECTROLYTE IMBALANCE [None]
